FAERS Safety Report 7120158-3 (Version None)
Quarter: 2010Q4

REPORT INFORMATION
  Report Type: 
  Country: None (occurrence: None)
  Receive Date: 20101123
  Receipt Date: 20101102
  Transmission Date: 20110411
  Serious: Yes (Other)
  Sender: FDA-Public Use
  Company Number: US-AMGEN-USASP2010003037

PATIENT

DRUGS (1)
  1. ARANESP [Suspect]
     Indication: ANAEMIA OF MALIGNANT DISEASE
     Dosage: UNK
     Dates: start: 20101025

REACTIONS (6)
  - CONFUSIONAL STATE [None]
  - DYSARTHRIA [None]
  - DYSPNOEA [None]
  - HEART RATE INCREASED [None]
  - LOSS OF CONSCIOUSNESS [None]
  - SOMNOLENCE [None]
